FAERS Safety Report 18046835 (Version 1)
Quarter: 2020Q3

REPORT INFORMATION
  Report Type: Spontaneous
  Country: JP (occurrence: JP)
  Receive Date: 20200721
  Receipt Date: 20200721
  Transmission Date: 20201103
  Serious: Yes (Hospitalization, Other)
  Sender: FDA-Public Use
  Company Number: JP-AMGEN-JPNSP2020116715

PATIENT
  Age: 87 Year
  Sex: Female

DRUGS (3)
  1. CORALAN [Suspect]
     Active Substance: IVABRADINE HYDROCHLORIDE
     Indication: CARDIAC FAILURE CHRONIC
     Dosage: UNK
     Route: 048
     Dates: start: 202001, end: 202002
  2. SAMSCA [Concomitant]
     Active Substance: TOLVAPTAN
     Indication: CARDIAC FAILURE CONGESTIVE
     Dosage: UNK
     Route: 065
     Dates: start: 201911
  3. CORALAN [Suspect]
     Active Substance: IVABRADINE HYDROCHLORIDE
     Dosage: UNK
     Route: 048
     Dates: start: 2020

REACTIONS (3)
  - Cardiac failure [Unknown]
  - Brain natriuretic peptide increased [Unknown]
  - Oxygen saturation decreased [Unknown]

NARRATIVE: CASE EVENT DATE: 202002
